FAERS Safety Report 8259762-8 (Version None)
Quarter: 2012Q2

REPORT INFORMATION
  Report Type: 
  Country: None (occurrence: None)
  Receive Date: 20120404
  Receipt Date: 20120329
  Transmission Date: 20120825
  Serious: Yes (Disabling)
  Sender: FDA-Public Use
  Company Number: AU-B.I. PHARMACEUTICALS,INC./RIDGEFIELD-2012-AU-00434AU

PATIENT
  Sex: Male

DRUGS (2)
  1. PRADAXA [Suspect]
     Indication: ATRIAL FIBRILLATION
     Dates: start: 20110813, end: 20120202
  2. BICOR [Concomitant]
     Dates: start: 20060101

REACTIONS (6)
  - LOWER RESPIRATORY TRACT INFECTION [None]
  - JOINT SWELLING [None]
  - CARDIAC FAILURE [None]
  - OEDEMA PERIPHERAL [None]
  - DIZZINESS [None]
  - DYSGEUSIA [None]
